FAERS Safety Report 17714829 (Version 1)
Quarter: 2020Q2

REPORT INFORMATION
  Report Type: Spontaneous
  Country: AT (occurrence: AT)
  Receive Date: 20200427
  Receipt Date: 20200427
  Transmission Date: 20200714
  Serious: Yes (Other)
  Sender: FDA-Public Use
  Company Number: NVSC2020AT112664

PATIENT
  Age: 3 Year
  Sex: Male

DRUGS (2)
  1. ETOPOSIDE. [Suspect]
     Active Substance: ETOPOSIDE
     Indication: EPENDYMOMA MALIGNANT
     Dosage: HIGH-DOSE CHEMOTHERAPY
     Route: 065
  2. CARBOPLATIN. [Suspect]
     Active Substance: CARBOPLATIN
     Indication: EPENDYMOMA MALIGNANT
     Dosage: UNK
     Route: 065

REACTIONS (2)
  - Malignant neoplasm progression [Recovered/Resolved]
  - Product use in unapproved indication [Unknown]
